FAERS Safety Report 9499115 (Version 2)
Quarter: 2013Q3

REPORT INFORMATION
  Report Type: Spontaneous
  Country: JP (occurrence: JP)
  Receive Date: 20130904
  Receipt Date: 20130911
  Transmission Date: 20140515
  Serious: No
  Sender: FDA-Public Use
  Company Number: JP-B.I. PHARMACEUTICALS,INC./RIDGEFIELD-2013-BI-27269YA

PATIENT
  Age: 82 Year
  Sex: Male

DRUGS (5)
  1. HARNAL (TAMSULOSIN) ORODISPERSABLE CR [Suspect]
     Indication: BENIGN PROSTATIC HYPERPLASIA
     Dosage: 0.2 MG
     Route: 048
  2. DEPAKENE [Concomitant]
     Route: 048
  3. AKINETON [Concomitant]
     Route: 048
  4. PHENOBAL [Concomitant]
     Route: 048
  5. MAGLAX [Concomitant]
     Route: 048

REACTIONS (1)
  - Micturition disorder [Unknown]
